FAERS Safety Report 17015177 (Version 1)
Quarter: 2019Q4

REPORT INFORMATION
  Report Type: Spontaneous
  Country: SE (occurrence: SE)
  Receive Date: 20191111
  Receipt Date: 20191111
  Transmission Date: 20200122
  Serious: Yes (Hospitalization)
  Sender: FDA-Public Use
  Company Number: SE-TEVA-2019-SE-1135737

PATIENT
  Age: 69 Year
  Sex: Male

DRUGS (8)
  1. SAROTEN 10 MG FILMDRAGERAD TABLETT [Suspect]
     Active Substance: AMITRIPTYLINE HYDROCHLORIDE
     Dosage: 20 MG PER DAY
     Dates: start: 2017
  2. BACLOFEN. [Concomitant]
     Active Substance: BACLOFEN
     Dosage: 30 MG PER DAY
  3. ALVEDON [Concomitant]
     Active Substance: ACETAMINOPHEN
     Dosage: ^1-2 VB MAX 6/D^
  4. STESOLID 5 MG TABLETT [Concomitant]
     Dosage: 1.25 MG PER DAY
  5. GABAPENTIN. [Concomitant]
     Active Substance: GABAPENTIN
     Dosage: 900 MG PER DAY
  6. BRUFEN [Concomitant]
     Active Substance: IBUPROFEN
     Dosage: ^1 X 0-3^
  7. ATORVASTATIN [Concomitant]
     Active Substance: ATORVASTATIN
     Dosage: 40 MG PER DAY
  8. PREGABALIN. [Suspect]
     Active Substance: PREGABALIN
     Dosage: 600 MG PER DAY
     Route: 048
     Dates: start: 2018

REACTIONS (2)
  - Dysarthria [Recovered/Resolved]
  - Memory impairment [Recovered/Resolved]

NARRATIVE: CASE EVENT DATE: 2018
